FAERS Safety Report 8525757-X (Version None)
Quarter: 2012Q3

REPORT INFORMATION
  Report Type: 
  Country: None (occurrence: None)
  Receive Date: 20120720
  Receipt Date: 20120710
  Transmission Date: 20120928
  Serious: Yes (Hospitalization, Disabling, Other)
  Sender: FDA-Public Use
  Company Number: US-009507513-1203USA03373

PATIENT

DRUGS (4)
  1. FOSAMAX [Suspect]
     Indication: OSTEOPOROSIS
     Dosage: 70 MG, QW
     Route: 048
     Dates: start: 20040709, end: 20100501
  2. ALENDRONATE SODIUM [Suspect]
     Indication: OSTEOPOROSIS
     Dosage: 70 MG, QW
     Route: 048
     Dates: start: 20020501, end: 20100501
  3. ALENDRONATE SODIUM [Suspect]
     Indication: OSTEOPENIA
  4. FOSAMAX PLUS D [Suspect]
     Indication: OSTEOPOROSIS
     Dosage: 70  MG, QW
     Route: 048
     Dates: start: 20040709, end: 20100501

REACTIONS (14)
  - MUSCLE ATROPHY [None]
  - FEMUR FRACTURE [None]
  - BACK PAIN [None]
  - TOOTH DISORDER [None]
  - GINGIVAL DISORDER [None]
  - OSTEOARTHRITIS [None]
  - GLAUCOMA [None]
  - PULMONARY FIBROSIS [None]
  - PNEUMONIA STAPHYLOCOCCAL [None]
  - HAEMOGLOBIN DECREASED [None]
  - POST PROCEDURAL HAEMORRHAGE [None]
  - FUNCTIONAL RESIDUAL CAPACITY DECREASED [None]
  - LOW TURNOVER OSTEOPATHY [None]
  - HYPOTENSION [None]
